FAERS Safety Report 4921999-0 (Version None)
Quarter: 2006Q1

REPORT INFORMATION
  Report Type: 
  Country: None (occurrence: None)
  Receive Date: 20060224
  Receipt Date: 20060126
  Transmission Date: 20060701
  Serious: Yes (Hospitalization)
  Sender: FDA-Public Use
  Company Number: US-AVENTIS-200610981US

PATIENT
  Sex: Female
  Weight: 43.2 kg

DRUGS (10)
  1. LANTUS [Suspect]
     Indication: DIABETES MELLITUS
     Dosage: DOSE UNIT: UNITS
     Dates: start: 20050201
  2. OPTICLIK (INSULIN INJECTION PEN) [Suspect]
     Indication: DIABETES MELLITUS
     Dates: start: 20051101
  3. PROGRAF [Concomitant]
     Dosage: DOSE: UNK
     Dates: start: 20000101
  4. RAPAMUNE [Concomitant]
     Dosage: DOSE: UNK
  5. BACTRIM [Concomitant]
     Dosage: DOSE: UNK
  6. PENICILLIN VK [Concomitant]
     Dosage: DOSE: UNK
  7. URSODIOL [Concomitant]
     Dosage: DOSE: UNK
  8. MACRODANTIN [Concomitant]
     Dosage: DOSE: UNK
  9. ASPIRIN [Concomitant]
  10. VALCYTE [Concomitant]
     Dosage: DOSE: UNK

REACTIONS (4)
  - BLOOD GLUCOSE INCREASED [None]
  - DRUG ADMINISTRATION ERROR [None]
  - PHARMACEUTICAL PRODUCT COMPLAINT [None]
  - URINARY TRACT INFECTION [None]
